FAERS Safety Report 9309858 (Version 1)
Quarter: 2013Q2

REPORT INFORMATION
  Report Type: Spontaneous
  Country: US (occurrence: US)
  Receive Date: 20130525
  Receipt Date: 20130525
  Transmission Date: 20140414
  Serious: No
  Sender: FDA-Public Use
  Company Number: US-BRISTOL-MYERS SQUIBB COMPANY-18752253

PATIENT
  Sex: Female
  Weight: 90.25 kg

DRUGS (3)
  1. BYDUREON [Suspect]
     Route: 058
  2. BYETTA [Suspect]
     Route: 058
  3. EXENATIDE UNK STRENGTH PEN, DISPOSABLE DEVICE [Concomitant]

REACTIONS (2)
  - Weight decreased [Unknown]
  - Blood glucose decreased [Recovered/Resolved]
